FAERS Safety Report 13381197 (Version 2)
Quarter: 2017Q2

REPORT INFORMATION
  Report Type: Spontaneous
  Country: US (occurrence: US)
  Receive Date: 20170329
  Receipt Date: 20170406
  Transmission Date: 20170830
  Serious: No
  Sender: FDA-Public Use
  Company Number: US-PFIZER INC-2016392623

PATIENT
  Age: 27 Year
  Sex: Female

DRUGS (5)
  1. ORTHO-CYCLEN-28 [Concomitant]
     Dosage: 1 DF, 1X/DAY (ETHINYLESTRADIOL-35 MCG/NORGESTIMATE-0.25 MG)
     Route: 048
     Dates: start: 20160219
  2. PHENTERMINE HCL [Concomitant]
     Active Substance: PHENTERMINE HYDROCHLORIDE
     Dosage: 37.5 MG, 1X/DAY
     Route: 048
     Dates: start: 20160610
  3. LYRICA [Suspect]
     Active Substance: PREGABALIN
     Indication: RESTLESS LEGS SYNDROME
     Dosage: 75 MG, 2X/DAY
     Route: 048
     Dates: start: 20160708
  4. CLONAZEPAM. [Concomitant]
     Active Substance: CLONAZEPAM
     Dosage: 1 MG, AS NEEDED (TWICE A DAY)
     Route: 048
     Dates: start: 20160219
  5. CELEXA [Concomitant]
     Active Substance: CITALOPRAM HYDROBROMIDE
     Dosage: 20 MG, 1X/DAY
     Route: 048
     Dates: start: 20160219

REACTIONS (9)
  - Pain in extremity [Unknown]
  - Hyperhidrosis [Unknown]
  - Nausea [Unknown]
  - Insomnia [Unknown]
  - Withdrawal syndrome [Unknown]
  - Eating disorder [Unknown]
  - Malaise [Unknown]
  - Cold sweat [Unknown]
  - Product use in unapproved indication [Unknown]

NARRATIVE: CASE EVENT DATE: 20160708
